FAERS Safety Report 14004686 (Version 1)
Quarter: 2017Q3

REPORT INFORMATION
  Report Type: Spontaneous
  Country: GB (occurrence: GB)
  Receive Date: 20170922
  Receipt Date: 20170922
  Transmission Date: 20171128
  Serious: Yes (Life-Threatening, Hospitalization, Disabling, Other)
  Sender: FDA-Public Use
  Company Number: GB-TORRENT-00015632

PATIENT
  Age: 23 Year
  Sex: Male

DRUGS (4)
  1. DIAZEPAM. [Suspect]
     Active Substance: DIAZEPAM
  2. SERTRALINE [Suspect]
     Active Substance: SERTRALINE HYDROCHLORIDE
  3. ZUCLOPENTHIXOL [Concomitant]
     Active Substance: ZUCLOPENTHIXOL
  4. RISPERIDONE. [Suspect]
     Active Substance: RISPERIDONE

REACTIONS (5)
  - Off label use [Unknown]
  - Fatigue [Unknown]
  - Pain [Unknown]
  - Infertility [Unknown]
  - Disorientation [Unknown]
